FAERS Safety Report 9283823 (Version 1)
Quarter: 2013Q2

REPORT INFORMATION
  Report Type: Spontaneous
  Country: US (occurrence: US)
  Receive Date: 20130510
  Receipt Date: 20130510
  Transmission Date: 20140414
  Serious: Yes (Hospitalization, Other)
  Sender: FDA-Public Use
  Company Number: US-BAYER-2013-054626

PATIENT
  Age: 83 Year
  Sex: Male
  Weight: 99.77 kg

DRUGS (2)
  1. BAYER GENUINE ASPIRIN ORIGINAL STRENGTH [Suspect]
  2. PLAVIX [Suspect]

REACTIONS (10)
  - Renal failure acute [Recovering/Resolving]
  - Urinary retention [Recovering/Resolving]
  - Dyspnoea [Recovering/Resolving]
  - Joint swelling [Recovering/Resolving]
  - Dysuria [Recovered/Resolved]
  - Urine flow decreased [Recovered/Resolved]
  - Pollakiuria [Recovered/Resolved]
  - Enuresis [Recovered/Resolved]
  - Urinary incontinence [Recovered/Resolved]
  - Post procedural haemorrhage [Recovered/Resolved]
